FAERS Safety Report 21212475 (Version 1)
Quarter: 2022Q3

REPORT INFORMATION
  Report Type: Spontaneous
  Country: US (occurrence: None)
  Receive Date: 20220813
  Receipt Date: 20220813
  Transmission Date: 20221027
  Serious: Yes (Life-Threatening, Disabling)
  Sender: FDA-Public Use
  Company Number: None

PATIENT
  Age: 56 Year
  Sex: Male
  Weight: 49.5 kg

DRUGS (6)
  1. BELBUCA [Suspect]
     Active Substance: BUPRENORPHINE HYDROCHLORIDE
     Indication: Pain
     Dates: start: 20220801, end: 20220808
  2. BUPRENORPHINE TRANSDERMAL SYSTEM [Suspect]
     Active Substance: BUPRENORPHINE
  3. TRESIBA [Concomitant]
     Active Substance: INSULIN DEGLUDEC
  4. HUMALOG [Concomitant]
     Active Substance: INSULIN LISPRO
  5. CYCLOBENZAPRINE [Concomitant]
     Active Substance: CYCLOBENZAPRINE
  6. myrtazapine [Concomitant]

REACTIONS (11)
  - Dermal absorption increased [None]
  - Incorrect dose administered [None]
  - Asthenia [None]
  - Insomnia [None]
  - Headache [None]
  - Visual impairment [None]
  - Feeling abnormal [None]
  - Dizziness [None]
  - Feeling of despair [None]
  - Product prescribing error [None]
  - Inappropriate schedule of product administration [None]

NARRATIVE: CASE EVENT DATE: 20220701
